FAERS Safety Report 16932510 (Version 1)
Quarter: 2019Q4

REPORT INFORMATION
  Report Type: Report from Study
  Country: BR (occurrence: BR)
  Receive Date: 20191017
  Receipt Date: 20191017
  Transmission Date: 20200122
  Serious: Yes (Other)
  Sender: FDA-Public Use
  Company Number: PHHY2019BR160372

PATIENT
  Sex: Male

DRUGS (1)
  1. GILENYA [Suspect]
     Active Substance: FINGOLIMOD HYDROCHLORIDE
     Indication: PRODUCT USED FOR UNKNOWN INDICATION
     Dosage: UNK
     Route: 065
     Dates: start: 201902

REACTIONS (9)
  - Back pain [Unknown]
  - Somnolence [Unknown]
  - General physical health deterioration [Unknown]
  - Myalgia [Unknown]
  - Insomnia [Unknown]
  - Furuncle [Unknown]
  - Chest discomfort [Unknown]
  - Memory impairment [Unknown]
  - Angina pectoris [Unknown]
